FAERS Safety Report 25875801 (Version 2)
Quarter: 2025Q4

REPORT INFORMATION
  Report Type: Spontaneous
  Country: EU (occurrence: EU)
  Receive Date: 20251003
  Receipt Date: 20251014
  Transmission Date: 20260118
  Serious: Yes (Other)
  Sender: AUROBINDO
  Company Number: EU-ABBVIE-6459429

PATIENT
  Age: 60 Year
  Sex: Female

DRUGS (5)
  1. ZOLPIDEM [Suspect]
     Active Substance: ZOLPIDEM TARTRATE
     Indication: Tooth infection
     Dosage: ANTIBIOTICS
     Route: 065
     Dates: start: 2025, end: 2025
  2. FOSLEVODOPA [Suspect]
     Active Substance: FOSLEVODOPA
     Indication: Parkinson^s disease
     Dosage: UNK
     Route: 058
     Dates: start: 20250407
  3. POLYETHYLENE GLYCOLS [Concomitant]
     Active Substance: POLYETHYLENE GLYCOLS
     Indication: Product used for unknown indication
     Dosage: UNK
     Route: 065
     Dates: start: 20240506
  4. CARBIDOPA\LEVODOPA [Concomitant]
     Active Substance: CARBIDOPA\LEVODOPA
     Indication: Parkinson^s disease
     Dosage: UNK
     Route: 065
     Dates: start: 20240401
  5. LORAZEPAM [Concomitant]
     Active Substance: LORAZEPAM
     Indication: Product used for unknown indication
     Dosage: UNK
     Route: 065
     Dates: start: 20241104

REACTIONS (8)
  - Parkinson^s disease [Unknown]
  - Therapeutic product effect incomplete [Not Recovered/Not Resolved]
  - Infusion site erythema [Not Recovered/Not Resolved]
  - On and off phenomenon [Not Recovered/Not Resolved]
  - Tooth infection [Recovering/Resolving]
  - Catheter site discharge [Not Recovered/Not Resolved]
  - Catheter site bruise [Not Recovered/Not Resolved]
  - Catheter site induration [Not Recovered/Not Resolved]

NARRATIVE: CASE EVENT DATE: 20250101
